FAERS Safety Report 19239198 (Version 1)
Quarter: 2021Q2

REPORT INFORMATION
  Report Type: Report from Study
  Country: US (occurrence: US)
  Receive Date: 20210510
  Receipt Date: 20210510
  Transmission Date: 20210717
  Serious: Yes (Hospitalization)
  Sender: FDA-Public Use
  Company Number: US-CELGENEUS-USA-20210406718

PATIENT
  Age: 61 Year
  Sex: Male

DRUGS (2)
  1. LENALIDOMIDE [Suspect]
     Active Substance: LENALIDOMIDE
     Indication: OFF LABEL USE
  2. LENALIDOMIDE [Suspect]
     Active Substance: LENALIDOMIDE
     Indication: ANTI-MYELIN-ASSOCIATED GLYCOPROTEIN ASSOCIATED POLYNEUROPATHY
     Dosage: 25 MILLIGRAM
     Route: 048
     Dates: start: 20191215, end: 20210413

REACTIONS (1)
  - COVID-19 [Unknown]

NARRATIVE: CASE EVENT DATE: 202104
